FAERS Safety Report 9771452 (Version 1)
Quarter: 2013Q4

REPORT INFORMATION
  Report Type: Spontaneous
  Country: IT (occurrence: IT)
  Receive Date: 20131219
  Receipt Date: 20131219
  Transmission Date: 20140711
  Serious: Yes (Other)
  Sender: FDA-Public Use
  Company Number: IT-PFIZER INC-2013362119

PATIENT
  Age: 64 Year
  Sex: Male

DRUGS (3)
  1. CORDARONE [Suspect]
     Indication: ATRIAL FIBRILLATION
     Dosage: 1 G, WEEKLY
     Route: 048
     Dates: start: 20130129, end: 20130928
  2. ATENOLOL [Suspect]
  3. ATENOLOL/CHLORTHALIDONE [Suspect]
     Indication: ATRIAL FIBRILLATION
     Dosage: 100 MG, 1X/DAY
     Route: 048
     Dates: start: 20130129, end: 20130928

REACTIONS (3)
  - Bradycardia [Recovered/Resolved]
  - Nocturnal dyspnoea [Recovered/Resolved]
  - Nodal rhythm [Recovered/Resolved]
